FAERS Safety Report 22666628 (Version 17)
Quarter: 2025Q1

REPORT INFORMATION
  Report Type: Report from Study
  Country: CA (occurrence: CA)
  Receive Date: 20230703
  Receipt Date: 20250206
  Transmission Date: 20250409
  Serious: Yes (Hospitalization, Other)
  Sender: GILEAD
  Company Number: CA-GLAXOSMITHKLINE-CA2023AMR062122

PATIENT
  Age: 70 Year
  Sex: Female

DRUGS (5)
  1. AMBRISENTAN [Suspect]
     Active Substance: AMBRISENTAN
     Indication: Pulmonary arterial hypertension
     Dosage: 10 MG, QD
     Route: 048
     Dates: start: 20220523
  2. AMBRISENTAN [Suspect]
     Active Substance: AMBRISENTAN
     Indication: Connective tissue disorder
  3. SELEXIPAG [Concomitant]
     Active Substance: SELEXIPAG
     Indication: Product used for unknown indication
  4. RAMIPRIL [Concomitant]
     Active Substance: RAMIPRIL
     Indication: Product used for unknown indication
  5. ADCIRCA [Concomitant]
     Active Substance: TADALAFIL
     Indication: Product used for unknown indication

REACTIONS (23)
  - Ankle fracture [Recovered/Resolved]
  - Nausea [Recovered/Resolved]
  - Fall [Unknown]
  - Back pain [Recovered/Resolved]
  - Pain in extremity [Unknown]
  - Poor quality sleep [Unknown]
  - Pain [Recovering/Resolving]
  - Ligament sprain [Recovering/Resolving]
  - Limb discomfort [Unknown]
  - Weight decreased [Unknown]
  - Asthenia [Recovered/Resolved]
  - Diarrhoea [Unknown]
  - Dizziness [Recovered/Resolved]
  - Headache [Not Recovered/Not Resolved]
  - Arthralgia [Recovered/Resolved]
  - Pain in jaw [Unknown]
  - Neck pain [Recovered/Resolved]
  - Frequent bowel movements [Unknown]
  - Muscle spasms [Unknown]
  - Myalgia [Unknown]
  - Vomiting [Unknown]
  - Nasopharyngitis [Unknown]
  - Ear congestion [Unknown]

NARRATIVE: CASE EVENT DATE: 20230118
